FAERS Safety Report 5341165-7 (Version None)
Quarter: 2007Q2

REPORT INFORMATION
  Report Type: 
  Country: None (occurrence: None)
  Receive Date: 20070404
  Receipt Date: 20070131
  Transmission Date: 20071010
  Serious: No
  Sender: FDA-Public Use
  Company Number: US200701004198

PATIENT
  Age: 75 Year
  Sex: Male

DRUGS (5)
  1. ALIMTA [Suspect]
     Indication: NON-SMALL CELL LUNG CANCER
     Dosage: 500 MG/M2
     Dates: start: 20061031
  2. VITAMIN B12 [Concomitant]
  3. FOLIC ACID [Concomitant]
  4. DECADRON /CAN/ (DEXAMETHASONE) [Concomitant]
  5. TAXOTERE [Concomitant]

REACTIONS (1)
  - RECALL PHENOMENON [None]
